FAERS Safety Report 10233547 (Version 1)
Quarter: 2014Q2

REPORT INFORMATION
  Report Type: Spontaneous
  Country: US (occurrence: None)
  Receive Date: 20140611
  Receipt Date: 20140611
  Transmission Date: 20141212
  Serious: No
  Sender: FDA-Public Use
  Company Number: None

PATIENT
  Age: 70 Year
  Sex: Male

DRUGS (1)
  1. NEXAVAR 200 MG BAYER [Suspect]
     Indication: HEPATIC CANCER
     Route: 048
     Dates: start: 20140515

REACTIONS (7)
  - Decreased appetite [None]
  - Fatigue [None]
  - Asthenia [None]
  - Dizziness [None]
  - Nausea [None]
  - Hypertension [None]
  - Skin exfoliation [None]
